FAERS Safety Report 12373024 (Version 1)
Quarter: 2016Q2

REPORT INFORMATION
  Report Type: Spontaneous
  Country: US (occurrence: US)
  Receive Date: 20160516
  Receipt Date: 20160516
  Transmission Date: 20160815
  Serious: Yes (Other)
  Sender: FDA-Public Use
  Company Number: US-BAYER-2016-091328

PATIENT
  Age: 25 Year
  Sex: Female
  Weight: 94.33 kg

DRUGS (1)
  1. MIRENA [Suspect]
     Active Substance: LEVONORGESTREL
     Dosage: 20 MCG/24HR, CONT
     Route: 015
     Dates: start: 20130626, end: 20151204

REACTIONS (7)
  - Uterine perforation [None]
  - Emotional distress [None]
  - Uterine scar [None]
  - Abdominal pain [None]
  - Device use issue [None]
  - Vaginal haemorrhage [None]
  - Procedural pain [None]

NARRATIVE: CASE EVENT DATE: 2014
